FAERS Safety Report 9067574 (Version 2)
Quarter: 2013Q1

REPORT INFORMATION
  Report Type: Spontaneous
  Country: GB (occurrence: GB)
  Receive Date: 20130128
  Receipt Date: 20130228
  Transmission Date: 20140127
  Serious: No
  Sender: FDA-Public Use
  Company Number: GB-009507513-1301GBR011060

PATIENT
  Age: 48 Year
  Sex: Female

DRUGS (6)
  1. SYCREST [Suspect]
     Indication: MANIA
     Dosage: 10 MG, QD
     Route: 060
     Dates: start: 201212
  2. SYCREST [Suspect]
     Dosage: 15 MG, QD
     Route: 060
  3. SYCREST [Suspect]
     Dosage: 10 MG, BID
     Route: 060
  4. QUETIAPINE FUMARATE [Concomitant]
     Dosage: 600 MG, QD
  5. DIAZEPAM [Concomitant]
  6. VALPROATE SODIUM [Concomitant]

REACTIONS (2)
  - Pruritus [Not Recovered/Not Resolved]
  - Dry skin [Not Recovered/Not Resolved]
